FAERS Safety Report 16377625 (Version 1)
Quarter: 2019Q2

REPORT INFORMATION
  Report Type: Spontaneous
  Country: DE (occurrence: DE)
  Receive Date: 20190531
  Receipt Date: 20190531
  Transmission Date: 20190711
  Serious: Yes (Hospitalization)
  Sender: FDA-Public Use
  Company Number: DE-TEVA-2019-DE-1056570

PATIENT
  Age: 73 Year
  Sex: Female

DRUGS (22)
  1. EUNERPAN [Interacting]
     Active Substance: MELPERONE HYDROCHLORIDE
     Dosage: 100 MG PER 1 DAY
     Dates: start: 20061121, end: 20061204
  2. ZYPREXA [Interacting]
     Active Substance: OLANZAPINE
     Dosage: 10 MG PER 1 DAY
     Dates: start: 20061114, end: 20061205
  3. DIAZEPAM. [Concomitant]
     Active Substance: DIAZEPAM
     Dates: start: 20061115, end: 20061119
  4. DIAZEPAM. [Concomitant]
     Active Substance: DIAZEPAM
     Dates: start: 20061102, end: 20061114
  5. VENLAFAXINE [Interacting]
     Active Substance: VENLAFAXINE HYDROCHLORIDE
     Dates: start: 20061109, end: 20061113
  6. HALDOL [Concomitant]
     Active Substance: HALOPERIDOL
     Dates: start: 20061210, end: 20061217
  7. HALDOL [Concomitant]
     Active Substance: HALOPERIDOL
     Dates: start: 20061205
  8. DIAZEPAM. [Concomitant]
     Active Substance: DIAZEPAM
     Dates: start: 20061122, end: 20061126
  9. KALINOR [Concomitant]
     Dosage: 1 DF PER 1 DAY
  10. VENLAFAXINE [Interacting]
     Active Substance: VENLAFAXINE HYDROCHLORIDE
     Dates: start: 20061123, end: 20061205
  11. VENLAFAXINE [Interacting]
     Active Substance: VENLAFAXINE HYDROCHLORIDE
     Dates: start: 20061114, end: 20061115
  12. REMERGIL [Interacting]
     Active Substance: MIRTAZAPINE
     Dosage: 45MG PER 1 DAY
  13. ASS 100 [Concomitant]
     Active Substance: ASPIRIN
     Dosage: 100 MG PER 1 DAY
  14. HALDOL [Concomitant]
     Active Substance: HALOPERIDOL
     Dosage: 10MG PER 1 DAY
     Dates: start: 20061206
  15. EUNERPAN [Interacting]
     Active Substance: MELPERONE HYDROCHLORIDE
     Dates: start: 20061205
  16. MOVICOL [Concomitant]
     Active Substance: POLYETHYLENE GLYCOL 3350\POTASSIUM CHLORIDE\SODIUM BICARBONATE\SODIUM CHLORIDE
  17. CONCOR [Concomitant]
     Active Substance: BISOPROLOL FUMARATE
     Dosage: 2.5MG PER 1 DAY
  18. DIAZEPAM. [Concomitant]
     Active Substance: DIAZEPAM
     Dosage: 2MG PER 1 DAY
     Dates: start: 20061120, end: 20061121
  19. FOLSAN [Concomitant]
     Active Substance: FOLIC ACID
     Dosage: 5MG PER 1 DAY
  20. VENLAFAXINE [Suspect]
     Active Substance: VENLAFAXINE HYDROCHLORIDE
     Dosage: 225MG PER 1 DAY
     Dates: start: 20061116, end: 20061122
  21. HALDOL [Concomitant]
     Active Substance: HALOPERIDOL
     Dates: start: 20061207, end: 20061207
  22. PANTOZOL [Concomitant]
     Active Substance: PANTOPRAZOLE SODIUM
     Dosage: 20 MG PER 1 DAY

REACTIONS (6)
  - Confusional state [Recovered/Resolved]
  - Drug interaction [Unknown]
  - Hallucination, visual [Recovered/Resolved]
  - Psychomotor hyperactivity [Recovered/Resolved]
  - Disorientation [Recovered/Resolved]
  - Brief psychotic disorder with marked stressors [Recovered/Resolved]

NARRATIVE: CASE EVENT DATE: 20061205
